FAERS Safety Report 23831021 (Version 2)
Quarter: 2024Q2

REPORT INFORMATION
  Report Type: Spontaneous
  Country: US (occurrence: US)
  Receive Date: 20240508
  Receipt Date: 20240603
  Transmission Date: 20240716
  Serious: Yes (Hospitalization)
  Sender: FDA-Public Use
  Company Number: US-TEVA-VS-3193114

PATIENT
  Age: 65 Year
  Sex: Male

DRUGS (2)
  1. PREDNISONE [Suspect]
     Active Substance: PREDNISONE
     Indication: Immunosuppressant drug therapy
     Route: 065
  2. TACROLIMUS [Suspect]
     Active Substance: TACROLIMUS
     Indication: Immunosuppressant drug therapy
     Route: 060

REACTIONS (7)
  - Brain abscess [Unknown]
  - Cerebral mass effect [Unknown]
  - Encephalopathy [Unknown]
  - Aspergillus infection [Unknown]
  - CNS ventriculitis [Unknown]
  - Fungal infection [Unknown]
  - Vasogenic cerebral oedema [Unknown]
